FAERS Safety Report 7644246-8 (Version None)
Quarter: 2011Q3

REPORT INFORMATION
  Report Type: 
  Country: None (occurrence: None)
  Receive Date: 20110729
  Receipt Date: 20110718
  Transmission Date: 20111222
  Serious: Yes (Other)
  Sender: FDA-Public Use
  Company Number: PHHY2011US48097

PATIENT
  Sex: Male
  Weight: 86.168 kg

DRUGS (1)
  1. GLEEVEC [Suspect]
     Indication: CHRONIC MYELOID LEUKAEMIA
     Dosage: 400 MG, DAILY
     Route: 048
     Dates: start: 20110501

REACTIONS (3)
  - MUSCLE SPASMS [None]
  - RHABDOMYOLYSIS [None]
  - RENAL FAILURE [None]
